FAERS Safety Report 7408896-6 (Version None)
Quarter: 2011Q2

REPORT INFORMATION
  Report Type: 
  Country: None (occurrence: None)
  Receive Date: 20110412
  Receipt Date: 20110408
  Transmission Date: 20111010
  Serious: Yes (Life-Threatening)
  Sender: FDA-Public Use
  Company Number: US-ASTRAZENECA-2011SE20047

PATIENT
  Age: 73 Year
  Sex: Male
  Weight: 90.7 kg

DRUGS (3)
  1. SEREVENT [Concomitant]
  2. SYMBICORT [Suspect]
     Indication: CHRONIC OBSTRUCTIVE PULMONARY DISEASE
     Dosage: 160 MCG TWO PUFFS BID
     Route: 055
     Dates: start: 20110301
  3. SYMBICORT [Suspect]
     Dosage: 160 MCG ONE PUFFS BID
     Route: 055

REACTIONS (4)
  - BLOOD GLUCOSE INCREASED [None]
  - SELF-MEDICATION [None]
  - INCORRECT DOSE ADMINISTERED [None]
  - DYSPNOEA [None]
